FAERS Safety Report 5980356-9 (Version None)
Quarter: 2008Q4

REPORT INFORMATION
  Report Type: 
  Country: None (occurrence: None)
  Receive Date: 20081202
  Receipt Date: 20081202
  Transmission Date: 20090506
  Serious: No
  Sender: FDA-Public Use
  Company Number: None

PATIENT
  Age: 42 Year
  Sex: Female
  Weight: 90.7194 kg

DRUGS (1)
  1. SERTRALINE HYDROCHLORIDE [Suspect]
     Indication: POSTPARTUM DEPRESSION
     Dosage: 1 1/2 TABSLETS ONCE A DAY PO
     Route: 048
     Dates: start: 20081002, end: 20081113

REACTIONS (10)
  - CONDITION AGGRAVATED [None]
  - CONFUSIONAL STATE [None]
  - CRYING [None]
  - DEPRESSION [None]
  - HOSTILITY [None]
  - HYPOAESTHESIA ORAL [None]
  - MORBID THOUGHTS [None]
  - RASH PRURITIC [None]
  - SLEEP PHASE RHYTHM DISTURBANCE [None]
  - THERAPEUTIC RESPONSE UNEXPECTED WITH DRUG SUBSTITUTION [None]
